FAERS Safety Report 7319789-7 (Version None)
Quarter: 2011Q1

REPORT INFORMATION
  Report Type: 
  Country: None (occurrence: None)
  Receive Date: 20110228
  Receipt Date: 20100922
  Transmission Date: 20110831
  Serious: No
  Sender: FDA-Public Use
  Company Number: A0883609A

PATIENT
  Sex: Female

DRUGS (1)
  1. LAMICTAL [Suspect]
     Route: 048

REACTIONS (7)
  - ADVERSE DRUG REACTION [None]
  - VULVOVAGINAL PRURITUS [None]
  - VULVOVAGINAL PAIN [None]
  - GENITAL RASH [None]
  - VULVOVAGINAL BURNING SENSATION [None]
  - VAGINAL DISCHARGE [None]
  - VULVOVAGINAL SWELLING [None]
